FAERS Safety Report 24434768 (Version 2)
Quarter: 2024Q4

REPORT INFORMATION
  Report Type: Spontaneous
  Country: JP (occurrence: JP)
  Receive Date: 20241014
  Receipt Date: 20241112
  Transmission Date: 20250114
  Serious: Yes (Hospitalization, Other)
  Sender: ADVANZ PHARMA
  Company Number: JP-SANOFI-AVENTIS R+D-2024SA284001

PATIENT

DRUGS (1)
  1. HYDROXYCHLOROQUINE SULFATE [Suspect]
     Active Substance: HYDROXYCHLOROQUINE SULFATE
     Indication: Product used for unknown indication
     Dosage: UNK (FILM COATED TABLET)
     Route: 048

REACTIONS (1)
  - Neoplasm malignant [Not Recovered/Not Resolved]
